FAERS Safety Report 25936514 (Version 1)
Quarter: 2025Q4

REPORT INFORMATION
  Report Type: Spontaneous
  Country: US (occurrence: US)
  Receive Date: 20251017
  Receipt Date: 20251017
  Transmission Date: 20260118
  Serious: Yes (Other)
  Sender: PHARMOBEDIENT CONSULTING, LLC
  Company Number: US-Pharmobedient-000337

PATIENT
  Age: 83 Year
  Sex: Female

DRUGS (1)
  1. ANASTROZOLE [Suspect]
     Active Substance: ANASTROZOLE
     Indication: Osteitis deformans

REACTIONS (3)
  - Hormone level abnormal [Unknown]
  - Apocrine breast carcinoma [Unknown]
  - Follicular lymphoma [Unknown]
